FAERS Safety Report 5339905-6 (Version None)
Quarter: 2007Q2

REPORT INFORMATION
  Report Type: 
  Country: None (occurrence: None)
  Receive Date: 20070529
  Receipt Date: 20070523
  Transmission Date: 20071010
  Serious: Yes (Hospitalization)
  Sender: FDA-Public Use
  Company Number: 44757

PATIENT
  Age: 60 Year
  Sex: Male
  Weight: 79.3795 kg

DRUGS (2)
  1. NAPROXEN SODIUM [Suspect]
     Indication: ARTHRALGIA
     Dosage: 220 MG/ 1 QD/ORAL
     Route: 048
     Dates: start: 20060523, end: 20070516
  2. NAPROXEN SODIUM [Suspect]
     Indication: HEADACHE
     Dosage: 220 MG/ 1 QD/ORAL
     Route: 048
     Dates: start: 20060523, end: 20070516

REACTIONS (2)
  - FLUID RETENTION [None]
  - HEPATIC FAILURE [None]
